FAERS Safety Report 5046897-6 (Version None)
Quarter: 2006Q2

REPORT INFORMATION
  Report Type: 
  Country: None (occurrence: None)
  Receive Date: 20060628
  Receipt Date: 20060622
  Transmission Date: 20061013
  Serious: Yes (Other)
  Sender: FDA-Public Use
  Company Number: HQWYE349923JUN06

PATIENT
  Sex: Female

DRUGS (1)
  1. SOMAC (PANTOPRAZOLE, UNSPEC) [Suspect]

REACTIONS (3)
  - ANGINA PECTORIS [None]
  - BLOOD PRESSURE INCREASED [None]
  - MULTIPLE SCLEROSIS [None]
